FAERS Safety Report 14891518 (Version 1)
Quarter: 2018Q2

REPORT INFORMATION
  Report Type: Spontaneous
  Country: US (occurrence: US)
  Receive Date: 20180514
  Receipt Date: 20180514
  Transmission Date: 20180711
  Serious: No
  Sender: FDA-Public Use
  Company Number: US-UNITED THERAPEUTICS-UNT-2018-000284

PATIENT
  Sex: Female
  Weight: 57.6 kg

DRUGS (2)
  1. REMODULIN [Suspect]
     Active Substance: TREPROSTINIL
     Indication: PULMONARY ARTERIAL HYPERTENSION
     Dosage: 0.0125 ?G/KG, CONTINUING
     Route: 041
     Dates: start: 20171127
  2. REMODULIN [Suspect]
     Active Substance: TREPROSTINIL
     Dosage: 0.01375 ?G/KG, CONTINUING
     Route: 041

REACTIONS (3)
  - Dizziness postural [Unknown]
  - Injection site haemorrhage [Unknown]
  - Device infusion issue [Unknown]
